FAERS Safety Report 13993327 (Version 2)
Quarter: 2017Q4

REPORT INFORMATION
  Report Type: Report from Study
  Country: BR (occurrence: BR)
  Receive Date: 20170920
  Receipt Date: 20171004
  Transmission Date: 20180321
  Serious: Yes (Other)
  Sender: FDA-Public Use
  Company Number: PHHY2017BR137216

PATIENT
  Sex: Female

DRUGS (2)
  1. VITALUX PLUS OMEGA 03 (ALC) [Suspect]
     Active Substance: MINERALS\OMEGA-3 FATTY ACIDS\VITAMINS
     Dosage: 1 DF, QD (IN THE MORNING)
     Route: 048
     Dates: start: 201704
  2. VITALUX PLUS OMEGA 03 (ALC) [Suspect]
     Active Substance: MINERALS\OMEGA-3 FATTY ACIDS\VITAMINS
     Indication: RETINAL DRUSEN
     Dosage: 2 DF, QD
     Route: 048

REACTIONS (4)
  - Influenza [Recovering/Resolving]
  - Pneumonia [Recovering/Resolving]
  - Dysphonia [Recovering/Resolving]
  - Pyrexia [Recovering/Resolving]
